FAERS Safety Report 7153291-0 (Version None)
Quarter: 2010Q4

REPORT INFORMATION
  Report Type: 
  Country: None (occurrence: None)
  Receive Date: 20101213
  Receipt Date: 20101130
  Transmission Date: 20110411
  Serious: Yes (Other)
  Sender: FDA-Public Use
  Company Number: DE-ROCHE-744170

PATIENT
  Sex: Female
  Weight: 70 kg

DRUGS (10)
  1. AVASTIN [Suspect]
     Indication: BREAST CANCER
     Dosage: PATIENT REVEIVED 4TH CYCLE BEVACIZUMAB.
     Route: 042
     Dates: start: 20100712, end: 20101025
  2. AVASTIN [Suspect]
     Route: 042
     Dates: start: 20101115
  3. HERCEPTIN [Concomitant]
     Route: 051
     Dates: start: 20100712, end: 20101025
  4. HERCEPTIN [Concomitant]
     Route: 051
     Dates: start: 20101115
  5. TAXOTERE [Concomitant]
     Route: 051
     Dates: start: 20100712, end: 20101025
  6. CYCLOPLATIN [Concomitant]
     Route: 051
     Dates: start: 20100712, end: 20101025
  7. ZOFRAN [Concomitant]
     Route: 051
     Dates: start: 20100712, end: 20101025
  8. TAVEGIL [Concomitant]
     Route: 051
     Dates: start: 20100712, end: 20101025
  9. RANITIDINE HCL [Concomitant]
     Route: 051
     Dates: start: 20100712, end: 20101025
  10. FORTECORTIN [Concomitant]
     Route: 048
     Dates: start: 20100712, end: 20101025

REACTIONS (8)
  - CONFUSIONAL STATE [None]
  - FORMICATION [None]
  - HEADACHE [None]
  - HYPERTENSION [None]
  - SLEEP DISORDER [None]
  - SOMNOLENCE [None]
  - SPEECH DISORDER [None]
  - VISUAL IMPAIRMENT [None]
